FAERS Safety Report 8004883-8 (Version None)
Quarter: 2011Q4

REPORT INFORMATION
  Report Type: 
  Country: None (occurrence: None)
  Receive Date: 20111223
  Receipt Date: 20111223
  Transmission Date: 20120403
  Serious: Yes (Congenital Anomaly, Other)
  Sender: FDA-Public Use
  Company Number: None

PATIENT
  Age: 19 Year
  Sex: Male
  Weight: 90.718 kg

DRUGS (1)
  1. MEFLOQUINE HYDROCHLORIDE [Suspect]
     Indication: MALARIA
     Dosage: 250MG
     Route: 048
     Dates: start: 19921210, end: 19930228

REACTIONS (6)
  - RASH [None]
  - ARTHRALGIA [None]
  - URTICARIA [None]
  - TINNITUS [None]
  - SLEEP DISORDER [None]
  - DIARRHOEA [None]
